FAERS Safety Report 22711735 (Version 2)
Quarter: 2024Q1

REPORT INFORMATION
  Report Type: Spontaneous
  Country: IT (occurrence: IT)
  Receive Date: 20230717
  Receipt Date: 20240209
  Transmission Date: 20240410
  Serious: Yes (Other)
  Sender: FDA-Public Use
  Company Number: IT-SUN PHARMACEUTICAL INDUSTRIES LTD-2023R1-394828

PATIENT
  Age: 52 Year
  Sex: Female

DRUGS (2)
  1. PREDNISONE [Suspect]
     Active Substance: PREDNISONE
     Indication: Morphoea
     Dosage: 0.75 MILLIGRAM/KILOGRAM
     Route: 065
  2. PIMECROLIMUS [Concomitant]
     Active Substance: PIMECROLIMUS
     Indication: Morphoea
     Dosage: UNK
     Route: 061

REACTIONS (1)
  - Drug ineffective [Unknown]
